FAERS Safety Report 5608790-7 (Version None)
Quarter: 2008Q1

REPORT INFORMATION
  Report Type: 
  Country: None (occurrence: None)
  Receive Date: 20080131
  Receipt Date: 20080128
  Transmission Date: 20080703
  Serious: Yes (Other)
  Sender: FDA-Public Use
  Company Number: ES-BRISTOL-MYERS SQUIBB COMPANY-14057210

PATIENT
  Age: 64 Year
  Sex: Male

DRUGS (5)
  1. CISPLATIN [Suspect]
     Indication: NASOPHARYNGEAL CANCER
  2. PACLITAXEL [Suspect]
     Indication: NASOPHARYNGEAL CANCER
  3. DOXORUBICIN HCL [Suspect]
     Indication: NASOPHARYNGEAL CANCER
  4. RADIOTHERAPY [Suspect]
     Indication: NASOPHARYNGEAL CANCER
  5. DOCETAXEL [Suspect]
     Indication: NASOPHARYNGEAL CANCER

REACTIONS (2)
  - PHARYNGEAL STENOSIS [None]
  - SOMNOLENCE [None]
